FAERS Safety Report 9828440 (Version 1)
Quarter: 2014Q1

REPORT INFORMATION
  Report Type: Spontaneous
  Country: KR (occurrence: KR)
  Receive Date: 20140117
  Receipt Date: 20140117
  Transmission Date: 20141002
  Serious: Yes (Other)
  Sender: FDA-Public Use
  Company Number: KR-ROXANE LABORATORIES, INC.-2014-RO-00046RO

PATIENT
  Age: 79 Year
  Sex: Female

DRUGS (2)
  1. DONEPEZIL HYDROCHLORIDE [Suspect]
     Indication: DEMENTIA
     Dosage: 10 MG
  2. LEVODOPA [Suspect]
     Indication: PARKINSON^S DISEASE
     Dosage: 500 MG

REACTIONS (2)
  - Torticollis [Recovered/Resolved]
  - Osteopenia [Unknown]
